FAERS Safety Report 10450606 (Version 2)
Quarter: 2014Q3

REPORT INFORMATION
  Report Type: Spontaneous
  Country: US (occurrence: None)
  Receive Date: 20140910
  Receipt Date: 20140919
  Transmission Date: 20150326
  Serious: Yes (Life-Threatening)
  Sender: FDA-Public Use
  Company Number: ONY-2014-004

PATIENT
  Age: 1 Day
  Sex: Male
  Weight: .49 kg

DRUGS (6)
  1. GENTAMICIN IV [Concomitant]
  2. TPN IV [Concomitant]
  3. INFASURF [Suspect]
     Active Substance: CALFACTANT
     Indication: NEONATAL RESPIRATORY DISTRESS SYNDROME PROPHYLAXIS
     Dosage: AT 19:20
     Dates: start: 20140903
  4. AMPICILLIN IV [Concomitant]
  5. CAFFEINE IV [Concomitant]
  6. FLUEONAZOLE IV [Concomitant]

REACTIONS (4)
  - Product deposit [None]
  - Endotracheal intubation complication [None]
  - Cardiac failure [None]
  - Product solubility abnormal [None]

NARRATIVE: CASE EVENT DATE: 20140904
